FAERS Safety Report 4567205-0 (Version None)
Quarter: 2005Q1

REPORT INFORMATION
  Report Type: 
  Country: None (occurrence: None)
  Receive Date: 20050201
  Receipt Date: 20050124
  Transmission Date: 20050727
  Serious: Yes (Hospitalization)
  Sender: FDA-Public Use
  Company Number: GB-GLAXOSMITHKLINE-B0365684A

PATIENT
  Age: 60 Year
  Sex: Female

DRUGS (2)
  1. ALKERAN [Suspect]
     Dosage: 10MG PER DAY
     Route: 048
     Dates: start: 20050121, end: 20050124
  2. PREDNISOLONE [Concomitant]
     Route: 065

REACTIONS (3)
  - ASTHMA [None]
  - DYSPNOEA [None]
  - METABOLIC ACIDOSIS [None]
